FAERS Safety Report 21462870 (Version 2)
Quarter: 2022Q4

REPORT INFORMATION
  Report Type: Report from Study
  Country: US (occurrence: US)
  Receive Date: 20221017
  Receipt Date: 20221118
  Transmission Date: 20230112
  Serious: Yes (Other)
  Sender: FDA-Public Use
  Company Number: US-NOVARTISPH-NVSC2022US230549

PATIENT
  Age: 38 Year
  Sex: Female

DRUGS (4)
  1. LAMPRENE [Suspect]
     Active Substance: CLOFAZIMINE
     Indication: Pulmonary cavitation
     Dosage: 100 MG, QD
     Route: 048
     Dates: start: 20220601
  2. LAMPRENE [Suspect]
     Active Substance: CLOFAZIMINE
     Indication: Mycobacterium avium complex infection
     Dosage: 100 MG, QD
     Route: 048
     Dates: start: 20220724
  3. AZITHROMYCIN [Concomitant]
     Active Substance: AZITHROMYCIN
     Indication: Mycobacterium avium complex infection
     Dosage: UNK
     Route: 065
     Dates: end: 20220725
  4. ETHAMBUTOL [Concomitant]
     Active Substance: ETHAMBUTOL HYDROCHLORIDE
     Indication: Mycobacterium avium complex infection
     Dosage: UNK
     Route: 065
     Dates: end: 20220725

REACTIONS (3)
  - Abortion spontaneous incomplete [Unknown]
  - Maternal exposure during pregnancy [Recovered/Resolved]
  - Pregnancy test urine positive [Recovered/Resolved]

NARRATIVE: CASE EVENT DATE: 20220701
